FAERS Safety Report 19224794 (Version 1)
Quarter: 2021Q2

REPORT INFORMATION
  Report Type: Spontaneous
  Country: US (occurrence: US)
  Receive Date: 20210506
  Receipt Date: 20210506
  Transmission Date: 20210717
  Serious: Yes (Hospitalization)
  Sender: FDA-Public Use
  Company Number: US-OTSUKA-2021_015101

PATIENT
  Sex: Male

DRUGS (1)
  1. ABILIFY [Suspect]
     Active Substance: ARIPIPRAZOLE
     Indication: SCHIZOPHRENIA
     Dosage: UNK
     Route: 065

REACTIONS (7)
  - Insomnia [Unknown]
  - Weight increased [Unknown]
  - Headache [Unknown]
  - Schizophrenia [Not Recovered/Not Resolved]
  - Sleep apnoea syndrome [Unknown]
  - Aggression [Unknown]
  - Back pain [Unknown]

NARRATIVE: CASE EVENT DATE: 20210411
